FAERS Safety Report 5093055-5 (Version None)
Quarter: 2006Q3

REPORT INFORMATION
  Report Type: 
  Country: None (occurrence: None)
  Receive Date: 20060830
  Receipt Date: 20060823
  Transmission Date: 20061208
  Serious: Yes (Hospitalization)
  Sender: FDA-Public Use
  Company Number: US-SANOFI-SYNTHELABO-A03200605322

PATIENT
  Age: 47 Year
  Sex: Female

DRUGS (8)
  1. MSM [Concomitant]
     Dosage: UNK
     Route: 065
  2. AMBIEN [Concomitant]
     Route: 048
  3. LEVOXYL [Concomitant]
     Indication: COLON CANCER
     Route: 042
  4. KYTRIL [Concomitant]
     Dosage: UNK
     Route: 065
  5. ELOXATIN [Suspect]
     Indication: COLON CANCER
     Route: 042
     Dates: start: 20060809, end: 20060809
  6. ELOXATIN [Suspect]
     Route: 042
     Dates: start: 20060809
  7. FLUOROURACIL [Concomitant]
     Indication: COLON CANCER
     Route: 042
  8. LEUCOVORIN CALCIUM [Concomitant]
     Dosage: UNK
     Route: 065

REACTIONS (7)
  - ASTHENIA [None]
  - BLOOD CREATINE PHOSPHOKINASE INCREASED [None]
  - CARDIAC FAILURE CONGESTIVE [None]
  - CARDIOMEGALY [None]
  - MALAISE [None]
  - PULMONARY EMBOLISM [None]
  - RHABDOMYOLYSIS [None]
